FAERS Safety Report 17873455 (Version 1)
Quarter: 2020Q2

REPORT INFORMATION
  Report Type: Spontaneous
  Country: FR (occurrence: FR)
  Receive Date: 20200609
  Receipt Date: 20200609
  Transmission Date: 20200714
  Serious: Yes (Other)
  Sender: FDA-Public Use
  Company Number: FR-AUROBINDO-AUR-APL-2020-027473

PATIENT
  Age: 56 Year
  Sex: Female

DRUGS (20)
  1. ROCEPHINE [Suspect]
     Active Substance: CEFTRIAXONE SODIUM
     Indication: INFECTION
     Dosage: 1 GRAM, ONCE A DAY
     Route: 042
     Dates: start: 20200423
  2. INCRUSE ELLIPTA [Concomitant]
     Active Substance: UMECLIDINIUM BROMIDE
     Indication: CHRONIC OBSTRUCTIVE PULMONARY DISEASE
     Dosage: 55 MICROGRAM, ONCE A DAY (1-0-0)
     Route: 055
     Dates: start: 201912
  3. LANTUS [Concomitant]
     Active Substance: INSULIN GLARGINE
     Indication: TYPE 2 DIABETES MELLITUS
     Dosage: 12 INTERNATIONAL UNIT, ONCE A DAY (THE EVENING)
     Route: 058
     Dates: start: 201805
  4. GABAPENTINE ARROW [Concomitant]
     Active Substance: GABAPENTIN
     Indication: NEURALGIA
     Dosage: 300 MILLIGRAM, ONCE A DAY (1-1-1)
     Route: 048
     Dates: start: 2018
  5. RELVAR ELLIPTA [Concomitant]
     Active Substance: FLUTICASONE FUROATE\VILANTEROL TRIFENATATE
     Indication: CHRONIC OBSTRUCTIVE PULMONARY DISEASE
     Dosage: 1 DOSAGE FORM, ONCE A DAY(1-0-0)
     Route: 055
     Dates: start: 201912
  6. TRAMADOL. [Suspect]
     Active Substance: TRAMADOL
     Dosage: 100 MILLIGRAM, ONCE A DAY
     Route: 042
     Dates: start: 20200503, end: 20200503
  7. VANCOMYCINE MYLAN [Suspect]
     Active Substance: VANCOMYCIN
     Dosage: 2 GRAM, ONCE A DAY
     Route: 042
     Dates: start: 20200430, end: 20200504
  8. TRAMADOL. [Suspect]
     Active Substance: TRAMADOL
     Indication: PAIN
     Dosage: 150 MILLIGRAM, ONCE A DAY
     Route: 042
     Dates: start: 20200424, end: 20200425
  9. TRAMADOL. [Suspect]
     Active Substance: TRAMADOL
     Dosage: 50 MILLIGRAM, ONCE A DAY
     Route: 042
     Dates: start: 20200502, end: 20200502
  10. QUETIAPINE. [Concomitant]
     Active Substance: QUETIAPINE
     Indication: DEPRESSION
     Dosage: 150 MILLIGRAM, ONCE A DAY
     Route: 048
     Dates: start: 2018
  11. RIFAXIMIN. [Suspect]
     Active Substance: RIFAXIMIN
     Indication: ANTIBIOTIC PROPHYLAXIS
     Dosage: 1100 MILLIGRAM, ONCE A DAY (1-0-1)
     Route: 048
     Dates: start: 20200425
  12. VANCOMYCINE MYLAN [Suspect]
     Active Substance: VANCOMYCIN
     Indication: INFECTION
     Dosage: 4 GRAM, ONCE A DAY
     Route: 042
     Dates: start: 20200428, end: 20200430
  13. SERESTA [Concomitant]
     Active Substance: OXAZEPAM
     Indication: ANXIETY
     Dosage: 10 MILLIGRAM, ONCE A DAY (0-0-1)
     Route: 048
     Dates: start: 2018
  14. PAROXETINE HCL [Concomitant]
     Active Substance: PAROXETINE HYDROCHLORIDE
     Indication: DEPRESSION
     Dosage: 20 MILLIGRAM, ONCE A DAY (1-0-0)
     Route: 048
     Dates: start: 2018
  15. NOVORAPID [Concomitant]
     Active Substance: INSULIN ASPART
     Indication: TYPE 2 DIABETES MELLITUS
     Dosage: 100 INTERNATIONAL UNIT (SI BESOIN, IF NECESSARY)
     Route: 058
     Dates: start: 201805
  16. TRAMADOL. [Suspect]
     Active Substance: TRAMADOL
     Dosage: 50 MILLIGRAM, ONCE A DAY
     Route: 042
     Dates: start: 20200504
  17. LOVENOX [Suspect]
     Active Substance: ENOXAPARIN SODIUM
     Indication: THROMBOSIS PROPHYLAXIS
     Dosage: 6000 INTERNATIONAL UNIT, ONCE A DAY
     Route: 058
     Dates: start: 20200428
  18. TERCIAN [Concomitant]
     Active Substance: CYAMEMAZINE
     Indication: DEPRESSION
     Dosage: 25 MILLIGRAM, ONCE A DAY (0-0-1)
     Route: 048
     Dates: start: 2018
  19. ERYTHROMYCINE PANPHARMA [Suspect]
     Active Substance: ERYTHROMYCIN LACTOBIONATE
     Indication: INFECTION
     Dosage: 250 MILLIGRAM, ONCE A DAY
     Route: 048
     Dates: start: 20200423
  20. CARVEDILOL. [Concomitant]
     Active Substance: CARVEDILOL
     Indication: HYPERTENSION
     Dosage: 12.5 MILLIGRAM, ONCE A DAY(1-0-1)
     Route: 048
     Dates: start: 2018

REACTIONS (2)
  - Rash maculo-papular [Recovered/Resolved]
  - Dermo-hypodermitis [Recovered/Resolved]

NARRATIVE: CASE EVENT DATE: 20200502
